FAERS Safety Report 10142715 (Version 1)
Quarter: 2014Q2

REPORT INFORMATION
  Report Type: Spontaneous
  Country: IN (occurrence: None)
  Receive Date: 20140425
  Receipt Date: 20140425
  Transmission Date: 20141212
  Serious: Yes (Hospitalization)
  Sender: FDA-Public Use
  Company Number: AMLO20140012

PATIENT
  Age: 28 Year
  Sex: Female

DRUGS (1)
  1. AMLODIPINE BESYLATE TABLETS 5 MG (AMLODIPINE BESILATE) ( 5 MILLIGRAM, TABLETS) [Suspect]
     Indication: INTENTIONAL OVERDOSE
     Route: 048

REACTIONS (15)
  - Shock [None]
  - Capillary leak syndrome [None]
  - Intentional overdose [None]
  - Vomiting [None]
  - Dyspnoea [None]
  - Abdominal pain [None]
  - Hypotension [None]
  - Hypoxia [None]
  - Respiratory rate increased [None]
  - Generalised oedema [None]
  - Pleural effusion [None]
  - Toxicity to various agents [None]
  - Fluid overload [None]
  - Overdose [None]
  - Renal failure acute [None]
